FAERS Safety Report 5248831-2 (Version None)
Quarter: 2007Q1

REPORT INFORMATION
  Report Type: 
  Country: None (occurrence: None)
  Receive Date: 20070228
  Receipt Date: 20060227
  Transmission Date: 20070707
  Serious: No
  Sender: FDA-Public Use
  Company Number: US-GLAXOSMITHKLINE-A0595342A

PATIENT
  Age: 45 Year
  Sex: Female

DRUGS (8)
  1. VALTREX [Suspect]
     Dosage: 500MG PER DAY
     Route: 048
     Dates: start: 20050901
  2. PLAQUENIL [Concomitant]
  3. EFFEXOR [Concomitant]
  4. COSAMIN [Concomitant]
  5. SUPPLEMENT [Concomitant]
  6. LYSINE [Concomitant]
  7. FISH OIL [Concomitant]
  8. IBUPROFEN [Concomitant]

REACTIONS (4)
  - DRUG INEFFECTIVE [None]
  - HERPES VIRUS INFECTION [None]
  - NAUSEA [None]
  - SCIATICA [None]
